FAERS Safety Report 14152773 (Version 1)
Quarter: 2017Q4

REPORT INFORMATION
  Report Type: Spontaneous
  Country: US (occurrence: US)
  Receive Date: 20171102
  Receipt Date: 20171102
  Transmission Date: 20180321
  Serious: Yes (Other)
  Sender: FDA-Public Use
  Company Number: US-GLAXOSMITHKLINE-US2017167118

PATIENT
  Age: 10 Year
  Sex: Female

DRUGS (1)
  1. ALLI [Suspect]
     Active Substance: ORLISTAT
     Indication: PRODUCT USED FOR UNKNOWN INDICATION
     Dosage: HANDFUL OF ALLI PILLS
     Route: 048
     Dates: start: 20171029, end: 20171029

REACTIONS (4)
  - Expired product administered [Unknown]
  - Drug administered to patient of inappropriate age [Unknown]
  - Suicide attempt [Unknown]
  - Overdose [Unknown]
